FAERS Safety Report 4441741-X (Version None)
Quarter: 2004Q3

REPORT INFORMATION
  Report Type: 
  Country: None (occurrence: None)
  Receive Date: 20040907
  Receipt Date: 20040826
  Transmission Date: 20050211
  Serious: Yes (Other)
  Sender: FDA-Public Use
  Company Number: US-JNJFOC-20040900450

PATIENT
  Sex: Female
  Weight: 85.28 kg

DRUGS (13)
  1. REMICADE [Suspect]
     Dosage: 3 OR 4 VIALS
     Route: 042
  2. REMICADE [Suspect]
     Dosage: 3 OR 4 VIALS
     Route: 042
  3. REMICADE [Suspect]
     Indication: RHEUMATOID ARTHRITIS
     Dosage: 3 OR 4 VIALS
     Route: 042
  4. ARAVA [Concomitant]
     Dosage: DISCONTINUED AFTER INFUSION REACTIONS
  5. PAXIL [Concomitant]
  6. FOLIC ACID [Concomitant]
  7. VITAMIN E [Concomitant]
  8. CENTRUM [Concomitant]
  9. CENTRUM [Concomitant]
  10. ADVAIR DISKUS 100/50 [Concomitant]
  11. ADVAIR DISKUS 100/50 [Concomitant]
  12. METHOTREXATE [Concomitant]
     Dosage: STARTED AFTER LEFLUNOMIDE WAS DISCONTINUED.
  13. EYE DROPS [Concomitant]

REACTIONS (4)
  - BLOOD TEST ABNORMAL [None]
  - CHOKING [None]
  - DYSPNOEA [None]
  - INFUSION RELATED REACTION [None]
